FAERS Safety Report 22281127 (Version 1)
Quarter: 2023Q2

REPORT INFORMATION
  Report Type: Report from Study
  Country: BR (occurrence: BR)
  Receive Date: 20230504
  Receipt Date: 20230504
  Transmission Date: 20230721
  Serious: Yes (Death, Hospitalization)
  Sender: FDA-Public Use
  Company Number: BR-BIOGEN-2023BI01202863

PATIENT
  Sex: Female
  Weight: 36 kg

DRUGS (3)
  1. TYSABRI [Suspect]
     Active Substance: NATALIZUMAB
     Indication: Multiple sclerosis
     Route: 050
     Dates: start: 201908, end: 202202
  2. TYSABRI [Suspect]
     Active Substance: NATALIZUMAB
     Route: 050
     Dates: start: 202204, end: 202303
  3. OCREVUS [Suspect]
     Active Substance: OCRELIZUMAB
     Indication: Multiple sclerosis
     Route: 050
     Dates: start: 202202

REACTIONS (8)
  - Sepsis [Fatal]
  - Gastrointestinal obstruction [Fatal]
  - Bronchopulmonary aspergillosis [Fatal]
  - Cardiac arrest [Recovered/Resolved with Sequelae]
  - Loss of consciousness [Recovered/Resolved]
  - Viral infection [Fatal]
  - Prescribed underdose [Recovered/Resolved]
  - Pneumonia [Unknown]

NARRATIVE: CASE EVENT DATE: 20220101
